FAERS Safety Report 21360410 (Version 1)
Quarter: 2022Q3

REPORT INFORMATION
  Report Type: Spontaneous
  Country: US (occurrence: None)
  Receive Date: 20220921
  Receipt Date: 20220921
  Transmission Date: 20221027
  Serious: No
  Sender: FDA-Public Use
  Company Number: None

PATIENT
  Sex: Male
  Weight: 35.8 kg

DRUGS (6)
  1. ASPARLAS [Suspect]
     Active Substance: CALASPARGASE PEGOL-MKNL
     Dates: end: 20220905
  2. CYTARABINE [Suspect]
     Active Substance: CYTARABINE
     Dates: end: 20220902
  3. DAUNORUBICIN [Suspect]
     Active Substance: DAUNORUBICIN
     Dates: end: 20220915
  4. METHOTREXATE [Suspect]
     Active Substance: METHOTREXATE
     Dates: end: 20220909
  5. PREDNISOLONE [Suspect]
     Active Substance: PREDNISOLONE
     Dates: end: 20220915
  6. VINCRISTINE SULFATE [Suspect]
     Active Substance: VINCRISTINE SULFATE
     Dates: end: 20220916

REACTIONS (6)
  - Decreased appetite [None]
  - Weight decreased [None]
  - Hyperglycaemia [None]
  - Hypophagia [None]
  - Laboratory test interference [None]
  - Hypertriglyceridaemia [None]

NARRATIVE: CASE EVENT DATE: 20220917
